FAERS Safety Report 8845272 (Version 2)
Quarter: 2013Q2

REPORT INFORMATION
  Report Type: Spontaneous
  Country: US (occurrence: None)
  Receive Date: 20120426
  Receipt Date: 20120703
  Transmission Date: 20140414
  Serious: No
  Sender: FDA-Public Use
  Company Number: PHEH2011US011515

PATIENT
  Age: 30 Year
  Sex: Female
  Weight: 55.8 kg

DRUGS (3)
  1. GILENYA [Suspect]
     Indication: MULTIPLE SCLEROSIS
     Route: 048
     Dates: start: 20111129
  2. VITAMIN D (ERGOCALCIFEROL) [Concomitant]
  3. ALPRAZOLAM (ALPRAZOLAM) [Concomitant]

REACTIONS (4)
  - Fatigue [None]
  - Feeling hot [None]
  - Somnolence [None]
  - Back pain [None]
